FAERS Safety Report 4793645-0 (Version None)
Quarter: 2005Q4

REPORT INFORMATION
  Report Type: 
  Country: None (occurrence: None)
  Receive Date: 20051006
  Receipt Date: 20050926
  Transmission Date: 20060501
  Serious: Yes (Hospitalization, Other)
  Sender: FDA-Public Use
  Company Number: USA-2003-0009420

PATIENT
  Age: 52 Year
  Sex: Female

DRUGS (3)
  1. OXYCONTIN [Suspect]
     Indication: PAIN
     Dates: start: 19990101, end: 20010101
  2. BENZODIAZEPINE DERIVATIVES () [Suspect]
  3. ALCOHOL (ETHANOL) [Suspect]

REACTIONS (26)
  - ALCOHOL POISONING [None]
  - AMNESIA [None]
  - ARTHRALGIA [None]
  - DEPRESSION [None]
  - DIARRHOEA [None]
  - DIZZINESS [None]
  - DRUG DEPENDENCE [None]
  - DRUG WITHDRAWAL SYNDROME [None]
  - DYSPNOEA [None]
  - HEADACHE [None]
  - HYPERHIDROSIS [None]
  - HYPOKALAEMIA [None]
  - INSOMNIA [None]
  - INTENTIONAL SELF-INJURY [None]
  - IRRITABILITY [None]
  - JOINT SWELLING [None]
  - LACERATION [None]
  - NAUSEA [None]
  - NERVOUSNESS [None]
  - OVERDOSE [None]
  - POLYSUBSTANCE ABUSE [None]
  - SUICIDAL IDEATION [None]
  - SUICIDE ATTEMPT [None]
  - TREMOR [None]
  - VOMITING [None]
  - WEIGHT DECREASED [None]
